FAERS Safety Report 5238093-4 (Version None)
Quarter: 2007Q1

REPORT INFORMATION
  Report Type: 
  Country: None (occurrence: None)
  Receive Date: 20070215
  Receipt Date: 20070201
  Transmission Date: 20070707
  Serious: Yes (Life-Threatening)
  Sender: FDA-Public Use
  Company Number: ES-JNJFOC-20070200362

PATIENT
  Age: 88 Year
  Sex: Female

DRUGS (3)
  1. TAVANIC [Suspect]
     Indication: RESPIRATORY TRACT INFECTION
     Route: 048
     Dates: start: 20061215, end: 20061220
  2. ALDOLACTONE [Concomitant]
     Route: 065
  3. ENALAPRIL MALEATE [Concomitant]
     Route: 065

REACTIONS (3)
  - BLOOD UREA INCREASED [None]
  - DIARRHOEA [None]
  - HYPERKALAEMIA [None]
